FAERS Safety Report 10906892 (Version 2)
Quarter: 2015Q1

REPORT INFORMATION
  Report Type: Spontaneous
  Country: GB (occurrence: GB)
  Receive Date: 20150312
  Receipt Date: 20150327
  Transmission Date: 20150721
  Serious: Yes (Congenital Anomaly)
  Sender: FDA-Public Use
  Company Number: GB-TEVA-544705ACC

PATIENT

DRUGS (4)
  1. ARIPIPRAZOLE. [Suspect]
     Active Substance: ARIPIPRAZOLE
     Indication: MANIA
     Dosage: 15 MILLIGRAM DAILY;
     Route: 064
     Dates: start: 20131224
  2. FOLIC ACID. [Concomitant]
     Active Substance: FOLIC ACID
     Route: 064
  3. METFORMIN [Concomitant]
     Active Substance: METFORMIN HYDROCHLORIDE
     Route: 064
  4. SERTRALINE [Suspect]
     Active Substance: SERTRALINE HYDROCHLORIDE
     Indication: DEPRESSION
     Dosage: 150 MILLIGRAM DAILY;
     Route: 064
     Dates: start: 20140125, end: 20141110

REACTIONS (2)
  - Dextrocardia [Unknown]
  - Foetal exposure during pregnancy [Unknown]
